FAERS Safety Report 7318132-7 (Version None)
Quarter: 2011Q1

REPORT INFORMATION
  Report Type: 
  Country: None (occurrence: None)
  Receive Date: 20110228
  Receipt Date: 20110218
  Transmission Date: 20110831
  Serious: No
  Sender: FDA-Public Use
  Company Number: US-BIOGENIDEC-2010BI042101

PATIENT
  Sex: Male

DRUGS (1)
  1. TYSABRI [Suspect]
     Indication: MULTIPLE SCLEROSIS
     Route: 042
     Dates: start: 20090626, end: 20100901

REACTIONS (7)
  - HIP FRACTURE [None]
  - ABASIA [None]
  - JOINT CONTRACTURE [None]
  - PAIN [None]
  - DEPRESSION [None]
  - GAIT DISTURBANCE [None]
  - FALL [None]
